FAERS Safety Report 9289602 (Version 5)
Quarter: 2013Q4

REPORT INFORMATION
  Report Type: Spontaneous
  Country: US (occurrence: US)
  Receive Date: 20130515
  Receipt Date: 20131003
  Transmission Date: 20140711
  Serious: Yes (Hospitalization)
  Sender: FDA-Public Use
  Company Number: US-BIOGENIDEC-2013BI042363

PATIENT
  Age: 53 Year
  Sex: Female

DRUGS (1)
  1. TYSABRI [Suspect]
     Indication: MULTIPLE SCLEROSIS
     Route: 042
     Dates: start: 20130307, end: 20130509

REACTIONS (10)
  - Daydreaming [Not Recovered/Not Resolved]
  - Pneumonia [Recovered/Resolved]
  - Apparent death [Recovered/Resolved]
  - Malaise [Not Recovered/Not Resolved]
  - Depressed level of consciousness [Recovered/Resolved]
  - Adverse drug reaction [Unknown]
  - General symptom [Unknown]
  - Sensory loss [Not Recovered/Not Resolved]
  - Abasia [Not Recovered/Not Resolved]
  - Aphasia [Recovered/Resolved with Sequelae]
